FAERS Safety Report 21263833 (Version 1)
Quarter: 2022Q3

REPORT INFORMATION
  Report Type: Spontaneous
  Country: US (occurrence: US)
  Receive Date: 20220829
  Receipt Date: 20220829
  Transmission Date: 20221026
  Serious: No
  Sender: FDA-Public Use
  Company Number: US-MSNLABS-2022MSNSPO00967

PATIENT

DRUGS (2)
  1. CAPECITABINE [Suspect]
     Active Substance: CAPECITABINE
     Indication: Product used for unknown indication
     Dosage: 02 TABLETS TWICE DAILY FOR 2 WEEKS
     Route: 048
  2. TEMOZOLOMIDE [Concomitant]
     Active Substance: TEMOZOLOMIDE
     Indication: Product used for unknown indication
     Dosage: TAKE 2 CAPSULES BY MOUTH ONCE DAILY AT BEDTIME ON DAYS 10-14 OF A 28 DAY CYCLE
     Route: 048

REACTIONS (1)
  - Drug ineffective [Unknown]
